FAERS Safety Report 14381469 (Version 1)
Quarter: 2018Q1

REPORT INFORMATION
  Report Type: Spontaneous
  Country: US (occurrence: US)
  Receive Date: 20180111
  Receipt Date: 20180111
  Transmission Date: 20180509
  Serious: No
  Sender: FDA-Public Use
  Company Number: None

PATIENT
  Age: 53 Year
  Sex: Female

DRUGS (1)
  1. GLATIRAMER 40MG MYLAN [Suspect]
     Active Substance: GLATIRAMER
     Indication: MULTIPLE SCLEROSIS
     Route: 058
     Dates: start: 20171202, end: 20180109

REACTIONS (5)
  - Flushing [None]
  - Dyspnoea [None]
  - Chest discomfort [None]
  - Head discomfort [None]
  - Pain in extremity [None]

NARRATIVE: CASE EVENT DATE: 20171202
